FAERS Safety Report 10482756 (Version 1)
Quarter: 2014Q3

REPORT INFORMATION
  Report Type: Spontaneous
  Country: US (occurrence: US)
  Receive Date: 20140929
  Receipt Date: 20140929
  Transmission Date: 20150326
  Serious: Yes (Other)
  Sender: FDA-Public Use
  Company Number: US-ASTRAZENECA-2014SE70565

PATIENT
  Sex: Female

DRUGS (1)
  1. SEROQUEL [Suspect]
     Active Substance: QUETIAPINE FUMARATE
     Route: 048

REACTIONS (27)
  - Weight decreased [Unknown]
  - Peripheral swelling [Unknown]
  - Vomiting [Unknown]
  - Gastrointestinal disorder [Unknown]
  - Tourette^s disorder [Unknown]
  - Arthritis [Unknown]
  - Dyskinesia [Unknown]
  - VIIth nerve paralysis [Unknown]
  - Head discomfort [Unknown]
  - Activities of daily living impaired [Unknown]
  - Muscle disorder [Unknown]
  - Insomnia [Unknown]
  - Muscle spasms [Not Recovered/Not Resolved]
  - Palpitations [Unknown]
  - Drooling [Unknown]
  - Suicidal ideation [Unknown]
  - Dehydration [Unknown]
  - Aphagia [Unknown]
  - Dementia Alzheimer^s type [Unknown]
  - Dyspnoea [Unknown]
  - Muscle twitching [Unknown]
  - Feeling abnormal [Unknown]
  - Skin tightness [Unknown]
  - Depression [Unknown]
  - Drug intolerance [Unknown]
  - Muscular weakness [Unknown]
  - Hypersensitivity [Unknown]
